FAERS Safety Report 21433392 (Version 2)
Quarter: 2022Q4

REPORT INFORMATION
  Report Type: Spontaneous
  Country: TN (occurrence: TN)
  Receive Date: 20221010
  Receipt Date: 20221229
  Transmission Date: 20230112
  Serious: Yes (Other)
  Sender: FDA-Public Use
  Company Number: TN-ALKEM LABORATORIES LIMITED-TN-ALKEM-2022-08225

PATIENT
  Age: 2 Year
  Sex: Female

DRUGS (1)
  1. SIROLIMUS [Suspect]
     Active Substance: SIROLIMUS
     Indication: Lymphatic disorder
     Dosage: 0.4-0.8 MG/M2 (0.1-0.2 MG/KG/DAY)
     Route: 061

REACTIONS (2)
  - Pneumonia [Unknown]
  - Pneumonia bacterial [Unknown]
